FAERS Safety Report 12977364 (Version 6)
Quarter: 2017Q1

REPORT INFORMATION
  Report Type: Report from Study
  Country: CA (occurrence: CA)
  Receive Date: 20161128
  Receipt Date: 20170210
  Transmission Date: 20170428
  Serious: Yes (Hospitalization, Other)
  Sender: FDA-Public Use
  Company Number: CA-AMGEN-CANCT2016165954

PATIENT
  Age: 46 Year
  Sex: Male
  Weight: 150 kg

DRUGS (8)
  1. PEMBROLIZUMAB. [Suspect]
     Active Substance: PEMBROLIZUMAB
     Indication: MALIGNANT MELANOMA
     Dosage: 200 MG, UNK
     Route: 042
     Dates: start: 20160831
  2. SENOKOT [Concomitant]
     Active Substance: SENNOSIDES
     Dosage: 17.2 MG, UNK
     Route: 048
     Dates: start: 20160811, end: 20160920
  3. PREGABALIN. [Concomitant]
     Active Substance: PREGABALIN
     Dosage: 50 TO 75 MG, UNK
     Route: 048
     Dates: start: 20160820
  4. BENADRYL [Concomitant]
     Active Substance: DIPHENHYDRAMINE HYDROCHLORIDE
     Dosage: 50 MG, UNK
     Route: 048
     Dates: start: 20160902
  5. KEFLEX [Concomitant]
     Active Substance: CEPHALEXIN
     Dosage: 500 MG, UNK
     Route: 048
     Dates: start: 20161011, end: 20161020
  6. TALIMOGENE LAHERPAREPVEC [Suspect]
     Active Substance: TALIMOGENE LAHERPAREPVEC
     Indication: MALIGNANT MELANOMA
     Dosage: UNK
     Route: 026
     Dates: start: 20160831
  7. HYDROMORPHONE [Concomitant]
     Active Substance: HYDROMORPHONE
     Dosage: 1 TO 4.5 MG, UNK
     Route: 048
     Dates: start: 20160811
  8. COLACE [Concomitant]
     Active Substance: DOCUSATE SODIUM
     Dosage: 200 MG, UNK
     Route: 048
     Dates: start: 20160811, end: 20160920

REACTIONS (1)
  - Lymph gland infection [Recovered/Resolved]

NARRATIVE: CASE EVENT DATE: 20161116
